FAERS Safety Report 4287290-3 (Version None)
Quarter: 2004Q1

REPORT INFORMATION
  Report Type: 
  Country: None (occurrence: None)
  Receive Date: 20040205
  Receipt Date: 20040115
  Transmission Date: 20041129
  Serious: Yes (Hospitalization)
  Sender: FDA-Public Use
  Company Number: USA030843403

PATIENT
  Age: 57 Year
  Sex: Male
  Weight: 77 kg

DRUGS (4)
  1. FORTEO [Suspect]
     Indication: OSTEOPOROSIS
     Dates: start: 20030730
  2. NEXIUM [Concomitant]
  3. PREDNISONE [Concomitant]
  4. THEOPHYLLINE [Concomitant]

REACTIONS (2)
  - MYOCARDIAL INFARCTION [None]
  - VASCULAR OCCLUSION [None]
